FAERS Safety Report 5588845-6 (Version None)
Quarter: 2008Q1

REPORT INFORMATION
  Report Type: 
  Country: None (occurrence: None)
  Receive Date: 20080111
  Receipt Date: 20080103
  Transmission Date: 20080703
  Serious: Yes (Other)
  Sender: FDA-Public Use
  Company Number: AU-PFIZER INC-2008001410

PATIENT
  Age: 75 Year
  Sex: Female

DRUGS (8)
  1. ZOLOFT [Suspect]
     Indication: DEPRESSION
     Dosage: DAILY DOSE:50MG
  2. ZANIDIP [Concomitant]
  3. SIMVASTATIN [Concomitant]
  4. ATACAND HCT [Concomitant]
  5. ASPIRIN [Concomitant]
  6. CALCIUM CARBONATE [Concomitant]
  7. MYLANTA-II [Concomitant]
  8. CEPHALEXIN [Concomitant]

REACTIONS (2)
  - HYPERTENSION [None]
  - WOUND INFECTION BACTERIAL [None]
